FAERS Safety Report 15167054 (Version 1)
Quarter: 2018Q3

REPORT INFORMATION
  Report Type: Spontaneous
  Country: KR (occurrence: KR)
  Receive Date: 20180719
  Receipt Date: 20180719
  Transmission Date: 20181010
  Serious: Yes (Other)
  Sender: FDA-Public Use
  Company Number: KR-BAYER-2018-131245

PATIENT
  Age: 48 Year
  Sex: Female

DRUGS (1)
  1. MIRENA [Suspect]
     Active Substance: LEVONORGESTREL
     Indication: DYSMENORRHOEA
     Dosage: 20 MCG/24HR, CONT
     Route: 015

REACTIONS (3)
  - Haemorrhagic anaemia [None]
  - Menorrhagia [None]
  - Adenomyosis [None]

NARRATIVE: CASE EVENT DATE: 20180709
